FAERS Safety Report 9985947 (Version 1)
Quarter: 2014Q1

REPORT INFORMATION
  Report Type: Report from Study
  Country: US (occurrence: US)
  Receive Date: 20140307
  Receipt Date: 20140307
  Transmission Date: 20141002
  Serious: No
  Sender: FDA-Public Use
  Company Number: US-ABBVIE-13P-163-1088555-00

PATIENT
  Age: 20 Year
  Sex: Male
  Weight: 63.56 kg

DRUGS (2)
  1. HUMIRA [Suspect]
     Indication: CROHN^S DISEASE
     Route: 058
     Dates: start: 20130424, end: 20130424
  2. HUMIRA [Suspect]
     Route: 058
     Dates: start: 20130508, end: 20130508

REACTIONS (1)
  - Injection site haemorrhage [Recovered/Resolved]
